FAERS Safety Report 11110006 (Version 1)
Quarter: 2015Q2

REPORT INFORMATION
  Report Type: Report from Study
  Country: GB (occurrence: GB)
  Receive Date: 20150513
  Receipt Date: 20150513
  Transmission Date: 20150821
  Serious: Yes (Death, Hospitalization, Other)
  Sender: FDA-Public Use
  Company Number: GB-PFIZER INC-2015155019

PATIENT
  Age: 30 Year
  Sex: Female

DRUGS (12)
  1. PHENYTOIN SODIUM. [Suspect]
     Active Substance: PHENYTOIN SODIUM
     Dosage: 0.4 G, DAILY
  2. SODIUM BROMIDE [Concomitant]
     Active Substance: SODIUM BROMIDE
     Dosage: UNK, DAILY (GR. 60 )
  3. PHENOBARBITAL. [Concomitant]
     Active Substance: PHENOBARBITAL
     Dosage: 4 GR
  4. PHENOBARBITAL. [Concomitant]
     Active Substance: PHENOBARBITAL
     Dosage: 1/2 GR 3 TIME DAILY
  5. PHENOBARBITAL. [Concomitant]
     Active Substance: PHENOBARBITAL
     Dosage: 1 1/2 GR DAILY
  6. PHENYTOIN SODIUM. [Suspect]
     Active Substance: PHENYTOIN SODIUM
     Dosage: 0.6 G, DAILY
  7. SODIUM BROMIDE [Concomitant]
     Active Substance: SODIUM BROMIDE
     Indication: SEIZURE
     Dosage: UNK, 3X/DAY (GR. 10 )
  8. SODIUM BROMIDE [Concomitant]
     Active Substance: SODIUM BROMIDE
     Dosage: 30 GR DAILY
  9. PHENYTOIN SODIUM. [Suspect]
     Active Substance: PHENYTOIN SODIUM
     Indication: SEIZURE
     Dosage: 0.1 G, 3X/DAY
  10. PHENOBARBITAL. [Concomitant]
     Active Substance: PHENOBARBITAL
     Indication: SEIZURE
     Dosage: .1GR 3X/DAY
  11. PHENYTOIN SODIUM. [Suspect]
     Active Substance: PHENYTOIN SODIUM
     Dosage: 0.5 G, DAILY
  12. SODIUM BROMIDE [Concomitant]
     Active Substance: SODIUM BROMIDE
     Dosage: 10 GR, 3X/DAY

REACTIONS (8)
  - Intention tremor [Recovered/Resolved]
  - Coma [Fatal]
  - Nystagmus [Recovered/Resolved]
  - Status epilepticus [Unknown]
  - Romberg test positive [Recovered/Resolved]
  - Ataxia [Recovered/Resolved]
  - Reflexes abnormal [Recovered/Resolved]
  - Tremor [Recovered/Resolved]
